FAERS Safety Report 4795748-3 (Version None)
Quarter: 2005Q4

REPORT INFORMATION
  Report Type: 
  Country: None (occurrence: None)
  Receive Date: 20051012
  Receipt Date: 20050913
  Transmission Date: 20060501
  Serious: Yes (Disabling)
  Sender: FDA-Public Use
  Company Number: 2005UW13523

PATIENT
  Age: 86 Year
  Sex: Male
  Weight: 65.9 kg

DRUGS (3)
  1. IRESSA [Suspect]
     Indication: NON-SMALL CELL LUNG CANCER
     Route: 048
     Dates: start: 20040928, end: 20050222
  2. IBUPROFEN [Concomitant]
     Indication: PAIN
     Dosage: 600 MG Q6H PRN
     Route: 048
     Dates: start: 20041101
  3. INSULIN [Concomitant]
     Indication: DIABETES MELLITUS INSULIN-DEPENDENT

REACTIONS (3)
  - DIABETIC FOOT [None]
  - DISEASE PROGRESSION [None]
  - TOE AMPUTATION [None]
